FAERS Safety Report 11728764 (Version 1)
Quarter: 2015Q4

REPORT INFORMATION
  Report Type: Spontaneous
  Country: DE (occurrence: DE)
  Receive Date: 20151112
  Receipt Date: 20151112
  Transmission Date: 20160304
  Serious: Yes (Death, Other)
  Sender: FDA-Public Use
  Company Number: DE-GILEAD-2015-0172458

PATIENT
  Age: 75 Year
  Sex: Male

DRUGS (2)
  1. ZYDELIG [Suspect]
     Active Substance: IDELALISIB
     Dosage: UNK, ^REDUCED DOSAGE^
     Route: 065
     Dates: start: 20150827, end: 20150915
  2. ZYDELIG [Suspect]
     Active Substance: IDELALISIB
     Indication: CHRONIC LYMPHOCYTIC LEUKAEMIA
     Dosage: 150 MG, BID
     Route: 065
     Dates: start: 20150603, end: 20150813

REACTIONS (4)
  - Infection [Unknown]
  - Disease progression [Fatal]
  - Pneumonitis [Fatal]
  - Pneumonia [Fatal]
